FAERS Safety Report 5189933-9 (Version None)
Quarter: 2006Q4

REPORT INFORMATION
  Report Type: 
  Country: None (occurrence: None)
  Receive Date: 20061215
  Receipt Date: 20061201
  Transmission Date: 20070319
  Serious: Yes (Hospitalization)
  Sender: FDA-Public Use
  Company Number: 2006US002826

PATIENT
  Age: 57 Year
  Sex: Male

DRUGS (10)
  1. ADENOCARD [Suspect]
     Indication: ARRHYTHMIA
     Dosage: 6 MG, IV NOS
     Route: 042
     Dates: start: 20050704, end: 20050704
  2. ULTRAVIST (PHARMACY BULK) [Suspect]
     Indication: ANGIOGRAM
     Dosage: IV NOS
     Route: 042
     Dates: start: 20050704, end: 20050704
  3. SCANDICAINE(EPINEPHRINE, MEPIVACAINE) [Suspect]
     Indication: LOCAL ANAESTHESIA
     Dosage: SUBCUTANEOUS
     Route: 058
     Dates: start: 20050704, end: 20050704
  4. ENALAPRIL MALEATE [Concomitant]
  5. ASPIRIN [Concomitant]
  6. ARAVA [Concomitant]
  7. THEOPHYLLAMINE (AMINOPHYLLINE) [Concomitant]
  8. PREDNISOLONE [Concomitant]
  9. IRENAT (SODIUM PERCHLORATE) [Concomitant]
  10. SIMVASTATIN [Concomitant]

REACTIONS (3)
  - DERMATITIS [None]
  - ERYTHEMA MULTIFORME [None]
  - PSORIASIS [None]
